FAERS Safety Report 8478788 (Version 5)
Quarter: 2012Q4

REPORT INFORMATION
  Report Type: 
  Country: US (occurrence: US)
  Receive Date: 20120327
  Receipt Date: 20121121
  Transmission Date: 20130627
  Serious: Yes (Hospitalization, Other)
  Sender: FDA-Public Use
  Company Number: US-ASTRAZENECA-2012SE19205

PATIENT
  Age: 46 Year
  Sex: Female
  Weight: 61.7 kg

DRUGS (20)
  1. SEROQUEL [Suspect]
     Indication: BIPOLAR DISORDER
     Route: 048
     Dates: start: 2011
  2. SEROQUEL [Suspect]
     Indication: ANXIETY
     Route: 048
     Dates: start: 2011
  3. SEROQUEL [Suspect]
     Indication: BIPOLAR I DISORDER
     Route: 048
     Dates: start: 2011
  4. SEROQUEL [Suspect]
     Indication: SLEEP DISORDER
     Route: 048
     Dates: start: 2011
  5. SEROQUEL [Suspect]
     Indication: BIPOLAR DISORDER
     Route: 048
     Dates: start: 20101209, end: 201203
  6. SEROQUEL [Suspect]
     Indication: ANXIETY
     Route: 048
     Dates: start: 20101209, end: 201203
  7. SEROQUEL [Suspect]
     Indication: BIPOLAR I DISORDER
     Route: 048
     Dates: start: 20101209, end: 201203
  8. SEROQUEL [Suspect]
     Indication: SLEEP DISORDER
     Route: 048
     Dates: start: 20101209, end: 201203
  9. SEROQUEL [Suspect]
     Indication: BIPOLAR DISORDER
     Route: 048
  10. SEROQUEL [Suspect]
     Indication: ANXIETY
     Route: 048
  11. SEROQUEL [Suspect]
     Indication: BIPOLAR I DISORDER
     Route: 048
  12. SEROQUEL [Suspect]
     Indication: SLEEP DISORDER
     Route: 048
  13. SEROQUEL [Suspect]
     Indication: BIPOLAR DISORDER
     Route: 048
  14. SEROQUEL [Suspect]
     Indication: ANXIETY
     Route: 048
  15. SEROQUEL [Suspect]
     Indication: BIPOLAR I DISORDER
     Route: 048
  16. SEROQUEL [Suspect]
     Indication: SLEEP DISORDER
     Route: 048
  17. KLONOPIN [Concomitant]
     Indication: BIPOLAR DISORDER
     Route: 048
     Dates: start: 20110210
  18. KLONOPIN [Concomitant]
     Indication: ANXIETY
     Route: 048
     Dates: start: 20110210
  19. CELEXA [Concomitant]
     Indication: DEPRESSION
     Route: 048
     Dates: start: 20100209
  20. CELEXA [Concomitant]
     Indication: ANXIETY
     Route: 048
     Dates: start: 20100209

REACTIONS (17)
  - Chest pain [Unknown]
  - Hypoaesthesia [Unknown]
  - Angina pectoris [Unknown]
  - Hypertension [Unknown]
  - Blindness [Unknown]
  - Withdrawal syndrome [Recovered/Resolved]
  - Hyperhidrosis [Recovered/Resolved]
  - Disorientation [Recovered/Resolved]
  - Confusional state [Recovered/Resolved]
  - Malaise [Unknown]
  - Convulsion [Unknown]
  - Headache [Unknown]
  - Throat tightness [Unknown]
  - Paraesthesia [Unknown]
  - Arthritis [Unknown]
  - Hypoaesthesia [Unknown]
  - Drug dose omission [Unknown]
